FAERS Safety Report 9114987 (Version 2)
Quarter: 2013Q3

REPORT INFORMATION
  Report Type: Spontaneous
  Country: US (occurrence: US)
  Receive Date: 20130225
  Receipt Date: 20130822
  Transmission Date: 20140515
  Serious: Yes (Death, Hospitalization)
  Sender: FDA-Public Use
  Company Number: US-COVIDIEN/TYCO HEALTHCARE/MALLINCKRODT-T201204523

PATIENT
  Age: 40 Year
  Sex: Female

DRUGS (1)
  1. GABLOFEN [Suspect]
     Indication: MUSCLE SPASTICITY
     Dosage: 350 MCG/DAY
     Route: 037

REACTIONS (7)
  - Drug withdrawal syndrome [Recovering/Resolving]
  - Muscle spasticity [Recovering/Resolving]
  - Pruritus [Recovering/Resolving]
  - Pain in extremity [Recovering/Resolving]
  - Cerebrospinal fluid leakage [Recovering/Resolving]
  - Heart rate increased [Recovering/Resolving]
  - Device failure [Unknown]
